FAERS Safety Report 11614932 (Version 4)
Quarter: 2016Q2

REPORT INFORMATION
  Report Type: Spontaneous
  Country: JP (occurrence: JP)
  Receive Date: 20151009
  Receipt Date: 20160603
  Transmission Date: 20160815
  Serious: Yes (Death, Hospitalization, Other)
  Sender: FDA-Public Use
  Company Number: JP-BRISTOL-MYERS SQUIBB COMPANY-BMS-2015-015008

PATIENT
  Age: 63 Year
  Sex: Male
  Weight: 44 kg

DRUGS (3)
  1. ERBITUX [Suspect]
     Active Substance: CETUXIMAB
     Indication: HYPOPHARYNGEAL CANCER
     Dosage: 620 MG, WEEKLY (1/W)
     Route: 065
     Dates: start: 20140902, end: 20140902
  2. ERBITUX [Suspect]
     Active Substance: CETUXIMAB
     Dosage: 390 MG, WEEKLY (1/W)
     Route: 065
     Dates: start: 20140909, end: 20140930
  3. ERBITUX [Suspect]
     Active Substance: CETUXIMAB
     Dosage: 370 MG, WEEKLY (1/W)
     Route: 065
     Dates: start: 20141007, end: 20141021

REACTIONS (6)
  - Interstitial lung disease [Fatal]
  - Pleural effusion [Unknown]
  - Pneumonia aspiration [Recovered/Resolved]
  - Renal function test abnormal [Recovering/Resolving]
  - C-reactive protein increased [Unknown]
  - Mucosal inflammation [Unknown]

NARRATIVE: CASE EVENT DATE: 20141028
